FAERS Safety Report 18213032 (Version 1)
Quarter: 2020Q3

REPORT INFORMATION
  Report Type: Spontaneous
  Country: IT (occurrence: IT)
  Receive Date: 20200831
  Receipt Date: 20200831
  Transmission Date: 20201103
  Serious: Yes (Other)
  Sender: FDA-Public Use
  Company Number: IT-TEVA-2020-IT-1821268

PATIENT
  Age: 59 Year
  Sex: Male

DRUGS (3)
  1. OCTREOTIDE. [Suspect]
     Active Substance: OCTREOTIDE
     Indication: NEUROENDOCRINE CARCINOMA METASTATIC
     Dosage: LONG ACTING RELEASE, CONTROLLED RELEASE
     Route: 065
  2. MORPHINE [Concomitant]
     Active Substance: MORPHINE
     Indication: PAIN
     Route: 048
  3. EVEROLIMUS. [Suspect]
     Active Substance: EVEROLIMUS
     Indication: NEUROENDOCRINE CARCINOMA METASTATIC
     Dosage: 10 MILLIGRAM DAILY;
     Route: 065

REACTIONS (3)
  - Off label use [Unknown]
  - Malnutrition [Recovered/Resolved]
  - Stomatitis [Recovered/Resolved]
